FAERS Safety Report 7093289-4 (Version None)
Quarter: 2010Q4

REPORT INFORMATION
  Report Type: 
  Country: None (occurrence: None)
  Receive Date: 20101110
  Receipt Date: 20101109
  Transmission Date: 20110411
  Serious: Yes (Hospitalization)
  Sender: FDA-Public Use
  Company Number: SE-PFIZER INC-2010100790

PATIENT
  Age: 69 Year
  Sex: Male

DRUGS (10)
  1. ARTHROTEC [Suspect]
     Indication: ARTHRALGIA
     Dosage: 50 MG, 2X/DAY
     Route: 048
     Dates: start: 20091007, end: 20091105
  2. ARTHROTEC [Suspect]
     Dosage: UNK
     Route: 048
     Dates: start: 20091105, end: 20100601
  3. ARTHROTEC [Suspect]
     Dosage: UNK
     Route: 048
     Dates: start: 20100609, end: 20100712
  4. ALFUZOSIN [Concomitant]
     Indication: PROSTATIC DISORDER
     Dosage: 10 MG, 1X/DAY
     Dates: start: 20100609
  5. VIAGRA [Concomitant]
     Dosage: UNK
  6. DOVOBET [Concomitant]
     Dosage: UNK
  7. PROPYLENE GLYCOL [Concomitant]
     Dosage: UNK
  8. LACTIC ACID [Concomitant]
     Dosage: UNK
  9. LOCOID [Concomitant]
     Dosage: UNK
  10. DAIVONEX [Concomitant]
     Dosage: UNK

REACTIONS (3)
  - DEPRESSED MOOD [None]
  - HYPOCHROMIC ANAEMIA [None]
  - IRON DEFICIENCY ANAEMIA [None]
